FAERS Safety Report 16962438 (Version 2)
Quarter: 2019Q4

REPORT INFORMATION
  Report Type: Spontaneous
  Country: US (occurrence: US)
  Receive Date: 20191025
  Receipt Date: 20191202
  Transmission Date: 20200122
  Serious: Yes (Hospitalization, Other)
  Sender: FDA-Public Use
  Company Number: US-PFIZER INC-2019413561

PATIENT
  Age: 36 Year
  Sex: Female

DRUGS (5)
  1. MECLIZINE [Concomitant]
     Active Substance: MECLIZINE HYDROCHLORIDE
     Indication: DIZZINESS
     Dosage: UNK UNK, AS NEEDED
  2. HEPARIN SODIUM. [Suspect]
     Active Substance: HEPARIN SODIUM
     Indication: DEEP VEIN THROMBOSIS
     Dosage: 1.5 ML, 2X/DAY (1.5 ML EVERY 12 HRS INJECTION)/ (BID-TWO TIMES A DAY)
     Dates: start: 20190903, end: 20190929
  3. HEPARIN SODIUM. [Suspect]
     Active Substance: HEPARIN SODIUM
     Indication: EMBOLISM VENOUS
     Dosage: 15000 IU, 2X/DAY
     Route: 058
     Dates: start: 20190903, end: 20190929
  4. TYLENOL [Concomitant]
     Active Substance: ACETAMINOPHEN
     Indication: PAIN
     Dosage: UNK, (PRN-AS NEEDED)
  5. PNV [Concomitant]
     Indication: PREGNANCY
     Dosage: UNK, DAILY

REACTIONS (3)
  - Premature labour [Recovered/Resolved]
  - Product prescribing error [Unknown]
  - Premature rupture of membranes [Unknown]

NARRATIVE: CASE EVENT DATE: 20190903
